APPROVED DRUG PRODUCT: PROCHLORPERAZINE EDISYLATE
Active Ingredient: PROCHLORPERAZINE EDISYLATE
Strength: EQ 5MG BASE/ML
Dosage Form/Route: INJECTABLE;INJECTION
Application: A213630 | Product #001
Applicant: HIKMA PHARMACEUTICALS USA INC
Approved: Nov 22, 2022 | RLD: No | RS: No | Type: DISCN